FAERS Safety Report 4892534-0 (Version None)
Quarter: 2006Q1

REPORT INFORMATION
  Report Type: 
  Country: None (occurrence: None)
  Receive Date: 20060126
  Receipt Date: 20051115
  Transmission Date: 20060701
  Serious: Yes (Other)
  Sender: FDA-Public Use
  Company Number: PHNU2005DE03780

PATIENT
  Age: 62 Year
  Sex: Female
  Weight: 63 kg

DRUGS (6)
  1. GLEEVEC [Suspect]
     Indication: CHRONIC MYELOID LEUKAEMIA
     Dosage: 400 MG, UNK
     Route: 048
     Dates: start: 20040403, end: 20040406
  2. GLEEVEC [Suspect]
     Dosage: 400 MG, QD
     Route: 048
     Dates: start: 20041012, end: 20041014
  3. GLEEVEC [Suspect]
     Dosage: 400 MG, QD
     Route: 048
     Dates: start: 20041215, end: 20041019
  4. GLEEVEC [Suspect]
     Dosage: 400 MG, QD
     Route: 048
     Dates: start: 20050915, end: 20050919
  5. INTERFERON ALFA [Suspect]
     Route: 065
  6. GLUCOCORTICOIDS [Suspect]
     Route: 065

REACTIONS (7)
  - DEAFNESS [None]
  - DEAFNESS UNILATERAL [None]
  - DIZZINESS [None]
  - HERPES ZOSTER [None]
  - MYALGIA [None]
  - OEDEMA [None]
  - TINNITUS [None]
